FAERS Safety Report 7783995-8 (Version None)
Quarter: 2011Q3

REPORT INFORMATION
  Report Type: 
  Country: None (occurrence: None)
  Receive Date: 20110928
  Receipt Date: 20110914
  Transmission Date: 20111222
  Serious: Yes (Hospitalization)
  Sender: FDA-Public Use
  Company Number: IT-BAYER-2011-085771

PATIENT
  Age: 72 Year
  Sex: Female

DRUGS (3)
  1. SIMVASTATIN [Concomitant]
     Dosage: DAILY DOSE 1 DF
  2. ACESISTEM [Concomitant]
     Dosage: DAILY DOSE 32.5 MG
     Route: 048
  3. ASPIRIN [Suspect]
     Indication: PROPHYLAXIS
     Dosage: 100 MG, QD
     Route: 048
     Dates: start: 20110729, end: 20110731

REACTIONS (2)
  - MUSCULAR WEAKNESS [None]
  - SUBDURAL HAEMATOMA [None]
